FAERS Safety Report 20867736 (Version 2)
Quarter: 2022Q2

REPORT INFORMATION
  Report Type: Spontaneous
  Country: US (occurrence: US)
  Receive Date: 20220524
  Receipt Date: 20220615
  Transmission Date: 20220721
  Serious: No
  Sender: FDA-Public Use
  Company Number: US-PFIZER INC-202200736701

PATIENT
  Age: 34 Year
  Sex: Male
  Weight: 104.33 kg

DRUGS (3)
  1. PAXLOVID [Suspect]
     Active Substance: NIRMATRELVIR\RITONAVIR
     Indication: COVID-19 treatment
     Dosage: 3 DF, 2X/DAY (2 OF NIRMATRELVIR AND 1 OF RITONVIR EVERY 12 HOURS FOR 5 DAYS/ 300MG/150MG BID)
     Dates: start: 20220516
  2. IBUPROFEN [Concomitant]
     Active Substance: IBUPROFEN
     Dosage: UNK
     Dates: start: 20220518
  3. PEPTO CARE [Concomitant]
     Dosage: UNK
     Dates: start: 20220518

REACTIONS (3)
  - Headache [Recovered/Resolved]
  - Abdominal pain upper [Recovered/Resolved]
  - Impaired work ability [Unknown]

NARRATIVE: CASE EVENT DATE: 20220501
